FAERS Safety Report 7344853-6 (Version None)
Quarter: 2011Q1

REPORT INFORMATION
  Report Type: 
  Country: None (occurrence: None)
  Receive Date: 20110310
  Receipt Date: 20110304
  Transmission Date: 20110831
  Serious: Yes (Death, Other)
  Sender: FDA-Public Use
  Company Number: ES-GENZYME-CLOF-1001473

PATIENT
  Age: 35 Year
  Sex: Male

DRUGS (3)
  1. IDARUBICIN [Suspect]
     Indication: ACUTE LYMPHOCYTIC LEUKAEMIA
     Dosage: 40 MG/M2 ON DAY 1
     Route: 065
  2. CYTARABINE [Suspect]
     Indication: ACUTE LYMPHOCYTIC LEUKAEMIA
     Dosage: 3000 MG/M2 ON DAYS 1-5
     Route: 065
  3. EVOLTRA [Suspect]
     Indication: ACUTE LYMPHOCYTIC LEUKAEMIA
     Dosage: 40 MG/M2 ON DAYS 1-5
     Route: 042

REACTIONS (2)
  - ACUTE LYMPHOCYTIC LEUKAEMIA [None]
  - DEATH [None]
